FAERS Safety Report 22074917 (Version 3)
Quarter: 2025Q2

REPORT INFORMATION
  Report Type: Spontaneous
  Country: US (occurrence: US)
  Receive Date: 20230308
  Receipt Date: 20250510
  Transmission Date: 20250717
  Serious: No
  Sender: SANOFI AVENTIS
  Company Number: US-SA-2023SA073064

PATIENT
  Age: 59 Year
  Sex: Female
  Weight: 72.45 kg

DRUGS (2)
  1. CAPRELSA [Suspect]
     Active Substance: VANDETANIB
     Indication: Thyroid cancer
     Dosage: 200 MG, QD
     Route: 048
     Dates: start: 20161009
  2. CAPRELSA [Suspect]
     Active Substance: VANDETANIB
     Dosage: 100 MG, BID
     Route: 048
     Dates: start: 20230113

REACTIONS (2)
  - Gastroenteritis bacterial [Unknown]
  - Eye operation [Unknown]
